FAERS Safety Report 7134573-5 (Version None)
Quarter: 2010Q4

REPORT INFORMATION
  Report Type: 
  Country: None (occurrence: None)
  Receive Date: 20101203
  Receipt Date: 20101125
  Transmission Date: 20110411
  Serious: Yes (Hospitalization)
  Sender: FDA-Public Use
  Company Number: FR-SANOFI-AVENTIS-2010SA071512

PATIENT
  Age: 0 Day
  Sex: Male

DRUGS (2)
  1. PLAQUENIL [Suspect]
     Indication: MYELOFIBROSIS
     Route: 064
     Dates: end: 20101102
  2. CORTANCYL [Suspect]
     Indication: MYELOFIBROSIS
     Route: 064
     Dates: end: 20101102

REACTIONS (9)
  - DRUG EXPOSURE DURING PREGNANCY [None]
  - HAEMOLYTIC ANAEMIA [None]
  - HEPATOSPLENOMEGALY NEONATAL [None]
  - HYPERBILIRUBINAEMIA [None]
  - JAUNDICE [None]
  - MATERNAL DRUGS AFFECTING FOETUS [None]
  - NEUTROPENIA [None]
  - PREMATURE BABY [None]
  - THROMBOCYTOPENIA [None]
